FAERS Safety Report 23651548 (Version 4)
Quarter: 2024Q3

REPORT INFORMATION
  Report Type: Report from Study
  Country: US (occurrence: US)
  Receive Date: 20240320
  Receipt Date: 20240731
  Transmission Date: 20241017
  Serious: Yes (Death, Disabling, Other)
  Sender: SANOFI AVENTIS
  Company Number: US-SA-SAC20240315000054

PATIENT
  Age: 78 Year
  Sex: Male

DRUGS (2)
  1. ALEMTUZUMAB [Suspect]
     Active Substance: ALEMTUZUMAB
     Indication: Relapsing multiple sclerosis
     Dosage: 12 MG, QD
     Route: 041
     Dates: start: 20220418, end: 20220418
  2. ALEMTUZUMAB [Suspect]
     Active Substance: ALEMTUZUMAB
     Dosage: 12 MG, QD
     Route: 041
     Dates: start: 202204, end: 20220422

REACTIONS (2)
  - Cerebrovascular accident [Fatal]
  - Cardiac disorder [Unknown]

NARRATIVE: CASE EVENT DATE: 20220418
